FAERS Safety Report 6411711-0 (Version None)
Quarter: 2009Q4

REPORT INFORMATION
  Report Type: 
  Country: None (occurrence: None)
  Receive Date: 20091023
  Receipt Date: 20091010
  Transmission Date: 20100525
  Serious: No
  Sender: FDA-Public Use
  Company Number: B0598197A

PATIENT
  Age: 13 Year
  Sex: Female

DRUGS (1)
  1. RELENZA [Suspect]
     Indication: DRUG USE FOR UNKNOWN INDICATION
     Dosage: 20MG PER DAY
     Route: 055
     Dates: start: 20091010, end: 20091010

REACTIONS (2)
  - OVERDOSE [None]
  - SOMNOLENCE [None]
